FAERS Safety Report 23257386 (Version 2)
Quarter: 2023Q4

REPORT INFORMATION
  Report Type: Report from Study
  Country: AR (occurrence: AR)
  Receive Date: 20231204
  Receipt Date: 20231220
  Transmission Date: 20240110
  Serious: Yes (Hospitalization, Other)
  Sender: FDA-Public Use
  Company Number: AR-002147023-NVSC2023AR254868

PATIENT
  Age: 8 Year
  Sex: Female

DRUGS (2)
  1. ILARIS [Suspect]
     Active Substance: CANAKINUMAB
     Indication: Familial mediterranean fever
     Dosage: 2 MG/KG (0.4 ML), EVERY 28 DAYS
     Route: 058
     Dates: start: 20230926, end: 20231124
  2. ILARIS [Suspect]
     Active Substance: CANAKINUMAB
     Dosage: UNK (EVERY 28 DAYS)
     Route: 065
     Dates: start: 20231206

REACTIONS (14)
  - Beta haemolytic streptococcal infection [Recovered/Resolved]
  - Pyrexia [Recovering/Resolving]
  - Bronchospasm [Recovered/Resolved]
  - Urinary tract infection [Recovered/Resolved]
  - Arthralgia [Not Recovered/Not Resolved]
  - Decreased immune responsiveness [Unknown]
  - Infection [Unknown]
  - White blood cell count abnormal [Unknown]
  - Neutrophil count abnormal [Unknown]
  - Lymphocyte count abnormal [Unknown]
  - Haematocrit decreased [Unknown]
  - Blood urea abnormal [Unknown]
  - Aspartate aminotransferase abnormal [Unknown]
  - Alanine aminotransferase abnormal [Unknown]

NARRATIVE: CASE EVENT DATE: 20230929
